FAERS Safety Report 6693760-0 (Version None)
Quarter: 2010Q2

REPORT INFORMATION
  Report Type: 
  Country: None (occurrence: None)
  Receive Date: 20100423
  Receipt Date: 20091215
  Transmission Date: 20101027
  Serious: No
  Sender: FDA-Public Use
  Company Number: A0833656A

PATIENT
  Age: 52 Year
  Sex: Female

DRUGS (1)
  1. DEXEDRINE [Suspect]
     Indication: DRUG USE FOR UNKNOWN INDICATION
     Dosage: 75MG PER DAY
     Route: 048

REACTIONS (2)
  - ADVERSE EVENT [None]
  - TREATMENT NONCOMPLIANCE [None]
